FAERS Safety Report 7446548-7 (Version None)
Quarter: 2011Q2

REPORT INFORMATION
  Report Type: 
  Country: None (occurrence: None)
  Receive Date: 20110418
  Receipt Date: 20110406
  Transmission Date: 20111010
  Serious: Yes (Disabling, Other)
  Sender: FDA-Public Use
  Company Number: 2011MA003801

PATIENT
  Sex: Female

DRUGS (1)
  1. METOCLOPRAMIDE [Suspect]
     Dates: start: 20030801, end: 20081101

REACTIONS (13)
  - EMOTIONAL DISTRESS [None]
  - DEFORMITY [None]
  - FAMILY STRESS [None]
  - INJURY [None]
  - NERVOUS SYSTEM DISORDER [None]
  - PSYCHOLOGICAL FACTOR AFFECTING MEDICAL CONDITION [None]
  - EXTRAPYRAMIDAL DISORDER [None]
  - ECONOMIC PROBLEM [None]
  - MOVEMENT DISORDER [None]
  - TARDIVE DYSKINESIA [None]
  - PAIN [None]
  - ACTIVITIES OF DAILY LIVING IMPAIRED [None]
  - EMOTIONAL DISORDER [None]
